FAERS Safety Report 10935533 (Version 1)
Quarter: 2015Q1

REPORT INFORMATION
  Report Type: Spontaneous
  Country: US (occurrence: US)
  Receive Date: 20150320
  Receipt Date: 20150320
  Transmission Date: 20150721
  Serious: No
  Sender: FDA-Public Use
  Company Number: US-GLAXOSMITHKLINE-US2015034786

PATIENT
  Age: 65 Year
  Sex: Female

DRUGS (14)
  1. ASPIRIN (BABY) [Concomitant]
  2. BENLYSTA [Suspect]
     Active Substance: BELIMUMAB
     Indication: ARTHRITIS
  3. CYCLOBENZAPRINE [Concomitant]
     Active Substance: CYCLOBENZAPRINE
  4. DULOXETINE [Concomitant]
     Active Substance: DULOXETINE
  5. FOLIC ACID. [Concomitant]
     Active Substance: FOLIC ACID
  6. OMEPRAZOLE. [Concomitant]
     Active Substance: OMEPRAZOLE
  7. METHOTREXATE [Concomitant]
     Active Substance: METHOTREXATE
  8. BENLYSTA [Suspect]
     Active Substance: BELIMUMAB
     Indication: SYSTEMIC LUPUS ERYTHEMATOSUS
     Dosage: UNK, U
     Route: 042
     Dates: start: 201403, end: 201410
  9. VITAMIN B2 [Concomitant]
     Active Substance: RIBOFLAVIN
  10. HYDROCODONE [Concomitant]
     Active Substance: HYDROCODONE
  11. VITAMIN B6 [Concomitant]
     Active Substance: PYRIDOXINE HYDROCHLORIDE
  12. PREDNISONE. [Concomitant]
     Active Substance: PREDNISONE
  13. TRAMADOL [Concomitant]
     Active Substance: TRAMADOL
  14. ALENDRONATE [Concomitant]
     Active Substance: ALENDRONATE SODIUM

REACTIONS (2)
  - Glossodynia [Recovering/Resolving]
  - Tongue blistering [Recovering/Resolving]

NARRATIVE: CASE EVENT DATE: 20140301
